FAERS Safety Report 11074973 (Version 1)
Quarter: 2015Q2

REPORT INFORMATION
  Report Type: Spontaneous
  Country: US (occurrence: None)
  Receive Date: 20150428
  Receipt Date: 20150428
  Transmission Date: 20150821
  Serious: Yes (Disabling)
  Sender: FDA-Public Use
  Company Number: None

PATIENT
  Age: 69 Year
  Sex: Female
  Weight: 90.72 kg

DRUGS (10)
  1. EFFEXOR XR [Concomitant]
     Active Substance: VENLAFAXINE HYDROCHLORIDE
  2. LYRICA [Suspect]
     Active Substance: PREGABALIN
     Indication: PAIN IN EXTREMITY
     Dosage: 3 PILLS ONCE DAILY
     Dates: start: 20130401, end: 20150427
  3. CALCIUM [Concomitant]
     Active Substance: CALCIUM
  4. LYRICA [Suspect]
     Active Substance: PREGABALIN
     Indication: FIBROMYALGIA
     Dosage: 3 PILLS ONCE DAILY
     Dates: start: 20130401, end: 20150427
  5. TRAZODONE [Concomitant]
     Active Substance: TRAZODONE HYDROCHLORIDE
  6. BLACK COHOSH [Concomitant]
     Active Substance: BLACK COHOSH
  7. VITAMIN D [Concomitant]
     Active Substance: CHOLECALCIFEROL
  8. TOPROL XL [Concomitant]
     Active Substance: METOPROLOL SUCCINATE
  9. LIPITOR [Concomitant]
     Active Substance: ATORVASTATIN CALCIUM
  10. LEVOTHYROXINE [Concomitant]
     Active Substance: LEVOTHYROXINE

REACTIONS (2)
  - Feeling of body temperature change [None]
  - Withdrawal syndrome [None]

NARRATIVE: CASE EVENT DATE: 20140801
